FAERS Safety Report 14749574 (Version 3)
Quarter: 2018Q2

REPORT INFORMATION
  Report Type: Report from Study
  Country: US (occurrence: US)
  Receive Date: 20180411
  Receipt Date: 20180625
  Transmission Date: 20180711
  Serious: No
  Sender: FDA-Public Use
  Company Number: US-TEVA-2018-US-862407

PATIENT
  Sex: Female
  Weight: 64.47 kg

DRUGS (10)
  1. CETIRIZINE [Concomitant]
     Active Substance: CETIRIZINE HYDROCHLORIDE
     Indication: HYPERSENSITIVITY
     Route: 065
     Dates: start: 20000427
  2. PROAIR HFA [Concomitant]
     Active Substance: ALBUTEROL SULFATE
     Indication: ASTHMA
     Dosage: Q4, 2 PUFFS
     Dates: start: 20160912
  3. PROVIGIL [Suspect]
     Active Substance: MODAFINIL
     Indication: NARCOLEPSY
     Dosage: 100 MILLIGRAM DAILY;
     Route: 065
     Dates: start: 20161226
  4. FLONASE [Concomitant]
     Active Substance: FLUTICASONE PROPIONATE
     Indication: SEASONAL ALLERGY
     Dosage: 2 SPRAYS AT NOSTRIL
     Dates: start: 20160819
  5. PNV [Concomitant]
     Indication: PREGNANCY
     Dosage: 1 DOSAGE FORMS DAILY;
     Dates: start: 20171101
  6. ALBUTEROL. [Concomitant]
     Active Substance: ALBUTEROL
     Indication: ASTHMA
     Dosage: 10 G (90 BASE) MCG ACT INHALER, 2 PUFFS Q 4 PRN
     Route: 065
  7. PYRIDOXIME HYDROCHLORIDE [Concomitant]
     Route: 065
     Dates: start: 2017
  8. FLOVENT [Concomitant]
     Active Substance: FLUTICASONE PROPIONATE
     Indication: ASTHMA
     Dosage: 88 MICROGRAM DAILY; 1 PUFF
     Dates: start: 20160912
  9. PRILOSEC [Concomitant]
     Active Substance: OMEPRAZOLE MAGNESIUM
     Indication: GASTROOESOPHAGEAL REFLUX DISEASE
     Dosage: 20 MILLIGRAM DAILY;
     Route: 065
     Dates: end: 20160226
  10. ZYRTEC [Concomitant]
     Active Substance: CETIRIZINE HYDROCHLORIDE
     Indication: HYPERSENSITIVITY
     Dosage: 10 MILLIGRAM DAILY;
     Dates: start: 20000927

REACTIONS (1)
  - Maternal exposure during pregnancy [Unknown]
